FAERS Safety Report 4378524-5 (Version None)
Quarter: 2004Q2

REPORT INFORMATION
  Report Type: 
  Country: None (occurrence: None)
  Receive Date: 20040616
  Receipt Date: 20020305
  Transmission Date: 20050107
  Serious: Yes (Death)
  Sender: FDA-Public Use
  Company Number: US-GLAXOSMITHKLINE-A0361575A

PATIENT
  Age: 74 Year
  Sex: Male

DRUGS (3)
  1. TOPOTECAN [Suspect]
     Indication: MYELODYSPLASTIC SYNDROME
     Dosage: 1.5MGM2 PER DAY
     Route: 042
     Dates: start: 20011228, end: 20011231
  2. CYTARABINE [Suspect]
     Indication: MYELODYSPLASTIC SYNDROME
     Dosage: 2GM2 PER DAY
     Route: 042
     Dates: start: 20011228, end: 20011231
  3. GEMTUZUMAB OZOGAMICIN [Suspect]
     Indication: MYELODYSPLASTIC SYNDROME

REACTIONS (11)
  - ACUTE RESPIRATORY DISTRESS SYNDROME [None]
  - BONE MARROW DEPRESSION [None]
  - BONE MARROW DISORDER [None]
  - DRUG TOXICITY [None]
  - HEPATIC FAILURE [None]
  - MULTI-ORGAN FAILURE [None]
  - PNEUMONIA [None]
  - RENAL FAILURE [None]
  - RESPIRATORY DISTRESS [None]
  - RESPIRATORY FAILURE [None]
  - SEPSIS [None]
